FAERS Safety Report 5912463-0 (Version None)
Quarter: 2008Q4

REPORT INFORMATION
  Report Type: 
  Country: None (occurrence: None)
  Receive Date: 20081003
  Receipt Date: 20080919
  Transmission Date: 20090506
  Serious: Yes (Other)
  Sender: FDA-Public Use
  Company Number: 8037321

PATIENT
  Age: 6 Month
  Sex: Female
  Weight: 7.472 kg

DRUGS (6)
  1. KEPPRA [Suspect]
     Dosage: 1000 MG/D TRP
     Route: 064
     Dates: start: 20070905
  2. KEPPRA [Suspect]
     Dosage: 1000 MG/D TRM
     Route: 063
  3. VITAMIN TAB [Concomitant]
  4. FOLIC ACID [Concomitant]
  5. CRANBERRY CONCENTRATE [Concomitant]
  6. FIISH OIL [Concomitant]

REACTIONS (3)
  - DRUG EXPOSURE VIA BREAST MILK [None]
  - FAILURE TO THRIVE [None]
  - MATERNAL DRUGS AFFECTING FOETUS [None]
